FAERS Safety Report 23397437 (Version 2)
Quarter: 2024Q2

REPORT INFORMATION
  Report Type: Report from Study
  Country: GB (occurrence: GB)
  Receive Date: 20240112
  Receipt Date: 20240402
  Transmission Date: 20240716
  Serious: Yes (Hospitalization, Other)
  Sender: FDA-Public Use
  Company Number: GB-002147023-NVSC2023GB103883

PATIENT
  Sex: Male

DRUGS (2)
  1. KESIMPTA [Suspect]
     Active Substance: OFATUMUMAB
     Indication: Multiple sclerosis
     Dosage: 30 MG, QMO
     Route: 058
     Dates: start: 20230427
  2. KESIMPTA [Suspect]
     Active Substance: OFATUMUMAB
     Dosage: 20 MG, QMO (20MG/0.4 ML)
     Route: 058

REACTIONS (13)
  - Pleurisy [Unknown]
  - Dyspnoea [Unknown]
  - Dizziness [Unknown]
  - Pallor [Unknown]
  - Secretion discharge [Unknown]
  - Heart rate increased [Unknown]
  - Hypertension [Unknown]
  - Cough [Not Recovered/Not Resolved]
  - Loss of consciousness [Unknown]
  - Influenza like illness [Recovered/Resolved]
  - Fatigue [Recovered/Resolved]
  - Headache [Recovered/Resolved]
  - Incorrect dose administered [Unknown]

NARRATIVE: CASE EVENT DATE: 20230427
